FAERS Safety Report 9655895 (Version 2)
Quarter: 2013Q4

REPORT INFORMATION
  Report Type: Spontaneous
  Country: VE (occurrence: VE)
  Receive Date: 20131030
  Receipt Date: 20131030
  Transmission Date: 20140711
  Serious: Yes (Death, Hospitalization, Other)
  Sender: FDA-Public Use
  Company Number: VE-AMGEN-VENSP2013052359

PATIENT
  Age: 50 Year
  Sex: Male
  Weight: 71 kg

DRUGS (2)
  1. VECTIBIX [Suspect]
     Indication: ADENOCARCINOMA OF COLON
     Dosage: 426 MG, EVERY 15 DAYS (FOUR AMPOLLE)
     Route: 042
     Dates: start: 20130425, end: 20130711
  2. VECTIBIX [Suspect]
     Indication: METASTASES TO LIVER

REACTIONS (8)
  - Respiratory arrest [Fatal]
  - Feeling abnormal [Unknown]
  - Jaundice [Unknown]
  - Adenocarcinoma [Unknown]
  - Oedema peripheral [Unknown]
  - Rash [Unknown]
  - Haemoglobin decreased [Unknown]
  - Malaise [Unknown]
